FAERS Safety Report 25913882 (Version 2)
Quarter: 2025Q4

REPORT INFORMATION
  Report Type: Spontaneous
  Country: JP (occurrence: JP)
  Receive Date: 20251013
  Receipt Date: 20251106
  Transmission Date: 20260117
  Serious: Yes (Other)
  Sender: AMGEN
  Company Number: JP-AMGEN-JPNSP2025199819

PATIENT

DRUGS (2)
  1. BEVACIZUMAB [Suspect]
     Active Substance: BEVACIZUMAB
     Indication: Rectal cancer
     Dosage: UNK (INTRAVENOUS DRIP INFUSION)
     Route: 040
  2. BEVACIZUMAB [Suspect]
     Active Substance: BEVACIZUMAB
     Indication: Colon cancer

REACTIONS (5)
  - Metastases to peritoneum [Unknown]
  - Metastases to lung [Unknown]
  - Rectal cancer recurrent [Unknown]
  - Colon cancer recurrent [Unknown]
  - Post procedural complication [Unknown]
